FAERS Safety Report 20742434 (Version 1)
Quarter: 2022Q2

REPORT INFORMATION
  Report Type: Spontaneous
  Country: US (occurrence: US)
  Receive Date: 20220424
  Receipt Date: 20220424
  Transmission Date: 20220720
  Serious: No
  Sender: FDA-Public Use
  Company Number: US-ELI_LILLY_AND_COMPANY-US202204004187

PATIENT
  Sex: Male

DRUGS (7)
  1. TRULICITY [Suspect]
     Active Substance: DULAGLUTIDE
     Indication: Type 2 diabetes mellitus
     Dosage: UNK UNK, UNKNOWN
     Route: 058
  2. TRULICITY [Suspect]
     Active Substance: DULAGLUTIDE
     Dosage: 0.75 MG, UNKNOWN
     Route: 058
     Dates: start: 2021
  3. TOPAMAX [Suspect]
     Active Substance: TOPIRAMATE
     Indication: Migraine
     Dosage: 100 MG, UNKNOWN (2 TABLETS OF 50 MG)
     Route: 065
  4. TOPAMAX [Suspect]
     Active Substance: TOPIRAMATE
     Dosage: 200 MG, UNKNOWN (DOUBLED THE PREVIOUS DOSE)
     Route: 065
  5. .ALPHA.-TOCOPHEROL [Suspect]
     Active Substance: .ALPHA.-TOCOPHEROL
     Indication: Nasopharyngitis
     Dosage: UNK UNK, UNKNOWN
     Route: 065
  6. ASCORBIC ACID [Suspect]
     Active Substance: ASCORBIC ACID
     Indication: Nasopharyngitis
     Dosage: UNK UNK, UNKNOWN
     Route: 065
  7. VITAMIN D NOS [Suspect]
     Active Substance: VITAMIN D NOS
     Indication: Nasopharyngitis
     Dosage: UNK UNK, UNKNOWN
     Route: 065

REACTIONS (7)
  - Headache [Unknown]
  - Nasopharyngitis [Unknown]
  - Glycosylated haemoglobin increased [Unknown]
  - Migraine [Unknown]
  - Injection site pain [Unknown]
  - Abdominal pain upper [Unknown]
  - Vomiting [Unknown]

NARRATIVE: CASE EVENT DATE: 20210101
